FAERS Safety Report 4636812-9 (Version None)
Quarter: 2005Q2

REPORT INFORMATION
  Report Type: 
  Country: None (occurrence: None)
  Receive Date: 20050414
  Receipt Date: 20050401
  Transmission Date: 20051028
  Serious: Yes (Death, Other)
  Sender: FDA-Public Use
  Company Number: 2005054646

PATIENT
  Age: 82 Year
  Sex: 0

DRUGS (6)
  1. ZOLOFT [Suspect]
     Indication: DEPRESSION
     Dosage: 50 MG (50 MG, 1 IN 1 D), ORAL
     Route: 048
  2. AMOXICILLIN [Suspect]
     Indication: ILL-DEFINED DISORDER
  3. CLARITHROMYCIN [Suspect]
     Indication: ILL-DEFINED DISORDER
  4. WARFARIN SODIUM [Suspect]
     Indication: ILL-DEFINED DISORDER
     Dosage: 2.8 MG, ORAL
     Route: 048
  5. DIGOXIN [Concomitant]
  6. ATENOLOL [Concomitant]

REACTIONS (2)
  - DRUG INTERACTION [None]
  - INTERNATIONAL NORMALISED RATIO INCREASED [None]
